FAERS Safety Report 5554850-9 (Version None)
Quarter: 2007Q4

REPORT INFORMATION
  Report Type: 
  Country: None (occurrence: None)
  Receive Date: 20071213
  Receipt Date: 20071130
  Transmission Date: 20080405
  Serious: Yes (Hospitalization)
  Sender: FDA-Public Use
  Company Number: US-AMGEN-STX255000

PATIENT
  Sex: Male

DRUGS (2)
  1. ENBREL [Suspect]
     Indication: RHEUMATOID ARTHRITIS
     Route: 058
     Dates: start: 20041101
  2. METHOTREXATE [Concomitant]
     Route: 048
     Dates: start: 20000101

REACTIONS (7)
  - COLLAPSE OF LUNG [None]
  - DYSPNOEA [None]
  - NEUROPATHY [None]
  - SINUSITIS [None]
  - SUBCUTANEOUS EMPHYSEMA [None]
  - TONSILLAR CYST [None]
  - TONSILLITIS [None]
